FAERS Safety Report 9028442 (Version 2)
Quarter: 2013Q1

REPORT INFORMATION
  Report Type: Report from Study
  Country: US (occurrence: US)
  Receive Date: 20130124
  Receipt Date: 20130219
  Transmission Date: 20140127
  Serious: Yes (Hospitalization)
  Sender: FDA-Public Use
  Company Number: US-BAYER-2013-006097

PATIENT
  Age: 80 Year
  Sex: Female

DRUGS (21)
  1. SORAFENIB (RAF KINASE INHIBITOR) [Suspect]
     Indication: NON-SMALL CELL LUNG CANCER
     Dosage: 400 MG, BID
     Route: 048
     Dates: start: 20120626, end: 20120820
  2. SORAFENIB (RAF KINASE INHIBITOR) [Suspect]
     Indication: NON-SMALL CELL LUNG CANCER
     Dosage: 400 MG, BID
     Route: 048
     Dates: start: 20120831, end: 20120920
  3. SORAFENIB (RAF KINASE INHIBITOR) [Suspect]
     Indication: NON-SMALL CELL LUNG CANCER
     Dosage: 400 MG, BID
     Route: 048
     Dates: start: 201209
  4. ERLOTINIB [Concomitant]
     Indication: NON-SMALL CELL LUNG CANCER
  5. ANTINEOPLASTIC AGENTS [Concomitant]
     Indication: NON-SMALL CELL LUNG CANCER
  6. ANTINEOPLASTIC AGENTS [Concomitant]
     Indication: NON-SMALL CELL LUNG CANCER
  7. SKELAXIN [Concomitant]
     Indication: PAIN
     Dosage: 800 MG, PRN
     Route: 048
     Dates: start: 1990, end: 20121205
  8. HYDROCORTISONE [Concomitant]
     Indication: RASH
     Dosage: UNK UNK, PRN
     Route: 061
     Dates: start: 20120705
  9. ADVAIR DISKUS [Concomitant]
     Dosage: 1 PUFF(S), UNK
  10. ALLEGRA [Concomitant]
     Dosage: 180 MG, QD
  11. ASPIRIN [Concomitant]
     Dosage: 81 MG, QD
  12. CALCIUM [Concomitant]
     Dosage: 2 TABLETS
  13. COLACE [Concomitant]
     Dosage: 100 MG, UNK
  14. NORCO [Concomitant]
     Dosage: 10/325 Q4HR AS REQUIRED
  15. MIRALAX [Concomitant]
     Dosage: 1 PACKET/DAY
  16. NEXIUM [Concomitant]
     Dosage: 40 MG, QD
  17. MEGACE [Concomitant]
     Dosage: 800 MG, QD
  18. MULTIVITAMIN [Concomitant]
     Dosage: UNK UNK, QD
  19. PREMARIN [Concomitant]
     Dosage: 0.625 MG, Q2WK
     Route: 067
  20. FLUTICASONE PROPIONATE [Concomitant]
  21. FIBERCON [Concomitant]
     Dosage: 2 TABLETS, QD

REACTIONS (2)
  - Deep vein thrombosis [None]
  - Muscle spasms [None]
